FAERS Safety Report 22874764 (Version 3)
Quarter: 2023Q4

REPORT INFORMATION
  Report Type: Spontaneous
  Country: US (occurrence: US)
  Receive Date: 20230829
  Receipt Date: 20231005
  Transmission Date: 20240109
  Serious: Yes (Hospitalization)
  Sender: FDA-Public Use
  Company Number: US-BEH-2023162672

PATIENT
  Age: 68 Year
  Sex: Male

DRUGS (36)
  1. HIZENTRA [Suspect]
     Active Substance: HUMAN IMMUNOGLOBULIN G
     Indication: Immunodeficiency common variable
     Dosage: 22 GRAM, QOW
     Route: 058
     Dates: start: 20150714
  2. HIZENTRA [Suspect]
     Active Substance: HUMAN IMMUNOGLOBULIN G
     Dosage: 22 GRAM, QOW
     Route: 058
     Dates: start: 20150710
  3. HIZENTRA [Suspect]
     Active Substance: HUMAN IMMUNOGLOBULIN G
     Dosage: UNK
     Route: 058
     Dates: start: 20230821
  4. ASPIRIN [Concomitant]
     Active Substance: ASPIRIN
     Dosage: 81 MILLIGRAM, QD
     Route: 065
  5. ATORVASTATIN [Concomitant]
     Active Substance: ATORVASTATIN
     Dosage: 10 MILLIGRAM, QD
     Route: 065
  6. CLOPIDOGREL [Concomitant]
     Active Substance: CLOPIDOGREL BISULFATE
     Dosage: 75 MILLIGRAM, QD
     Route: 065
  7. CIPROFLOXACIN [Concomitant]
     Active Substance: CIPROFLOXACIN
     Route: 065
  8. METOPROLOL SUCCINATE [Concomitant]
     Active Substance: METOPROLOL SUCCINATE
     Dosage: 100 MILLIGRAM
     Route: 065
  9. NEOMYCIN\POLYMYXIN [Concomitant]
     Active Substance: NEOMYCIN\POLYMYXIN
     Route: 065
  10. PREDNISOLONE [Concomitant]
     Active Substance: PREDNISOLONE
     Route: 065
  11. ORGOVYX [Concomitant]
     Active Substance: RELUGOLIX
     Route: 065
  12. SOLIQUA 100/33 [Concomitant]
     Active Substance: INSULIN GLARGINE\LIXISENATIDE
     Route: 065
  13. CEFDINIR [Concomitant]
     Active Substance: CEFDINIR
     Route: 065
  14. NOVOLIN N [Concomitant]
     Active Substance: INSULIN HUMAN
     Route: 065
  15. STARLIX [Concomitant]
     Active Substance: NATEGLINIDE
     Route: 065
  16. DOXYCYCLINE [Concomitant]
     Active Substance: DOXYCYCLINE
     Route: 065
  17. LEVAQUIN [Concomitant]
     Active Substance: LEVOFLOXACIN
     Route: 065
  18. INVOKANA [Concomitant]
     Active Substance: CANAGLIFLOZIN
     Route: 065
  19. ALFUZOSIN [Concomitant]
     Active Substance: ALFUZOSIN
     Dosage: 10 MILLIGRAM
  20. FLUTICASONE [Concomitant]
     Active Substance: FLUTICASONE
     Dosage: 50 MICROGRAM
  21. GLIMEPIRIDE [Concomitant]
     Active Substance: GLIMEPIRIDE
     Dosage: 4 MILLIGRAM, QD
  22. LISINOPRIL [Concomitant]
     Active Substance: LISINOPRIL
     Dosage: 20 MILLIGRAM, QD
  23. LOVASTATIN [Concomitant]
     Active Substance: LOVASTATIN
     Dosage: 20 MILLIGRAM
  24. MECLIZINE HYDROCHLORIDE [Concomitant]
     Active Substance: MECLIZINE HYDROCHLORIDE
  25. MELATONIN [Concomitant]
     Active Substance: MELATONIN
     Dosage: 3 MILLIGRAM
  26. PREDNISONE [Concomitant]
     Active Substance: PREDNISONE
     Dosage: 5 MILLIGRAM, QOD
  27. SILODOSIN [Concomitant]
     Active Substance: SILODOSIN
     Dosage: 4 MILLIGRAM
  28. SOLIQUA 100/33 [Concomitant]
     Active Substance: INSULIN GLARGINE\LIXISENATIDE
     Dosage: 100 MICROGRAM
  29. ASCORBIC ACID [Concomitant]
     Active Substance: ASCORBIC ACID
     Dosage: 500 MILLIGRAM
  30. VITAMIN D3 [Concomitant]
     Active Substance: CHOLECALCIFEROL
     Dosage: 5000 INTERNATIONAL UNIT
  31. ZOFRAN [Concomitant]
     Active Substance: ONDANSETRON HYDROCHLORIDE
     Dosage: 4 MILLIGRAM
  32. SENOKOT [Concomitant]
     Active Substance: SENNOSIDES
     Dosage: 8.6 MILLIGRAM, QD PRN
  33. MAALOX ANTACID [Concomitant]
     Active Substance: ALUMINUM HYDROXIDE\DIMETHICONE\MAGNESIUM HYDROXIDE
     Dosage: 200 MILLIGRAM, QID PRNM
  34. ACETAMINOPHEN [Concomitant]
     Active Substance: ACETAMINOPHEN
     Dosage: 650 MILLIGRAM, QID PRN
  35. LEVOFLOXACIN [Concomitant]
     Active Substance: LEVOFLOXACIN
     Dosage: 30 MILLIGRAM, BID
  36. HUMALOG [Concomitant]
     Active Substance: INSULIN LISPRO
     Dosage: UNK, TID SLIDING SCALE

REACTIONS (1)
  - Ischaemic stroke [Recovered/Resolved]

NARRATIVE: CASE EVENT DATE: 20230821
